FAERS Safety Report 18274311 (Version 1)
Quarter: 2020Q3

REPORT INFORMATION
  Report Type: Spontaneous
  Country: JP (occurrence: JP)
  Receive Date: 20200916
  Receipt Date: 20200916
  Transmission Date: 20201103
  Serious: Yes (Other)
  Sender: FDA-Public Use
  Company Number: JP-PFIZER INC-2020353666

PATIENT
  Age: 86 Year
  Sex: Male

DRUGS (5)
  1. E KEPPRA [Concomitant]
     Active Substance: LEVETIRACETAM
     Dosage: UNK
     Route: 065
     Dates: start: 20200904
  2. PHENOBAL [PHENOBARBITAL] [Concomitant]
     Active Substance: PHENOBARBITAL
     Dosage: UNK
     Route: 065
  3. LANSOPRAZOLE. [Concomitant]
     Active Substance: LANSOPRAZOLE
     Dosage: UNK
     Route: 048
     Dates: start: 20200904
  4. FOSTOIN [Suspect]
     Active Substance: FOSPHENYTOIN SODIUM
     Indication: STATUS EPILEPTICUS
     Dosage: AT A LOADING DOSE (IT MAY HAVE BEEN A LARGE DOSE) AT THAT WEEKEND
     Route: 042
  5. FOSTOIN [Suspect]
     Active Substance: FOSPHENYTOIN SODIUM
     Dosage: 250 MG, DAILY (MAINTENANCE DOSE OF 250 MG ADMINISTRATED THEREAFTER)
     Route: 042

REACTIONS (2)
  - Hypopnoea [Unknown]
  - Anticonvulsant drug level increased [Unknown]
